FAERS Safety Report 9479610 (Version 1)
Quarter: 2013Q3

REPORT INFORMATION
  Report Type: Spontaneous
  Country: BR (occurrence: BR)
  Receive Date: 20130827
  Receipt Date: 20130827
  Transmission Date: 20140515
  Serious: Yes (Other)
  Sender: FDA-Public Use
  Company Number: PHHY2013BR091789

PATIENT
  Sex: Female
  Weight: 63 kg

DRUGS (2)
  1. ZOMETA [Suspect]
     Indication: BONE DISORDER
     Dosage: 4 MG, 1 APPLICATION, EVERY 2 TO 3 MONTHS
     Route: 042
     Dates: start: 201108
  2. ALENIA                             /01538101/ [Concomitant]
     Indication: ASTHMA
     Dosage: UNK, 2 INHALATION, DAILY

REACTIONS (4)
  - Jaw disorder [Not Recovered/Not Resolved]
  - Hypoaesthesia [Not Recovered/Not Resolved]
  - Hypoaesthesia oral [Not Recovered/Not Resolved]
  - Pain in jaw [Unknown]
